FAERS Safety Report 7184425-X (Version None)
Quarter: 2010Q4

REPORT INFORMATION
  Report Type: 
  Country: None (occurrence: None)
  Receive Date: 20101222
  Receipt Date: 20101214
  Transmission Date: 20110411
  Serious: Yes (Other)
  Sender: FDA-Public Use
  Company Number: US-SANOFI-AVENTIS-2010SA066628

PATIENT
  Age: 51 Year
  Sex: Male

DRUGS (2)
  1. SOLOSTAR [Suspect]
     Dates: start: 20070101
  2. LANTUS [Suspect]
     Dosage: DOSE:18 UNIT(S)
     Route: 058
     Dates: start: 20070101

REACTIONS (4)
  - BLOOD GLUCOSE INCREASED [None]
  - DEVICE BREAKAGE [None]
  - DEVICE MALFUNCTION [None]
  - DRUG DOSE OMISSION [None]
